FAERS Safety Report 6661798-5 (Version None)
Quarter: 2010Q1

REPORT INFORMATION
  Report Type: 
  Country: None (occurrence: None)
  Receive Date: 20100331
  Receipt Date: 20090708
  Transmission Date: 20100710
  Serious: Yes (Hospitalization)
  Sender: FDA-Public Use
  Company Number: US-BRISTOL-MYERS SQUIBB COMPANY-14684906

PATIENT
  Age: 84 Year
  Sex: Male

DRUGS (2)
  1. ERBITUX [Suspect]
     Indication: HEAD AND NECK CANCER
     Dosage: LOADING DOSE: 772MG
     Route: 042
     Dates: start: 20090206, end: 20090206
  2. RADIATION THERAPY [Suspect]
     Dosage: HELD FOR 3 WEEKS

REACTIONS (1)
  - MUCOSAL INFLAMMATION [None]
